FAERS Safety Report 7965941-7 (Version None)
Quarter: 2011Q4

REPORT INFORMATION
  Report Type: 
  Country: None (occurrence: None)
  Receive Date: 20111208
  Receipt Date: 20111206
  Transmission Date: 20120403
  Serious: No
  Sender: FDA-Public Use
  Company Number: US-PFIZER INC-2011298054

PATIENT
  Sex: Female

DRUGS (8)
  1. VITAMIN TAB [Concomitant]
     Dosage: UNK
  2. LIPITOR [Suspect]
     Indication: BLOOD CHOLESTEROL INCREASED
     Dosage: 20 MG, DAILY
     Route: 048
     Dates: start: 20110601
  3. TRIEST [Interacting]
     Indication: HYSTERECTOMY
     Dosage: 3.75 MG, DAILY
  4. VITAMIN D [Concomitant]
     Dosage: UNK
  5. MAGNESIUM [Concomitant]
     Dosage: UNK
  6. FISH OIL [Concomitant]
     Dosage: UNK
  7. CALCIUM [Concomitant]
     Dosage: UNK
  8. TRIEST [Interacting]
     Dosage: 3.75 MG, EVERY OTHER DAY

REACTIONS (2)
  - DRUG INTERACTION [None]
  - BREAST TENDERNESS [None]
